FAERS Safety Report 17277525 (Version 2)
Quarter: 2020Q1

REPORT INFORMATION
  Report Type: Report from Study
  Country: None (occurrence: US)
  Receive Date: 20200116
  Receipt Date: 20200319
  Transmission Date: 20200409
  Serious: Yes (Hospitalization, Other)
  Sender: FDA-Public Use
  Company Number: US-ABBVIE-19K-163-3155222-00

PATIENT
  Sex: Male

DRUGS (16)
  1. IMBRUVICA [Suspect]
     Active Substance: IBRUTINIB
     Dosage: 280 MG, QD
     Route: 048
     Dates: start: 20181116
  2. IMBRUVICA [Suspect]
     Active Substance: IBRUTINIB
     Dosage: 280 MG, QD
     Route: 048
     Dates: start: 20151012, end: 20180322
  3. IMBRUVICA [Suspect]
     Active Substance: IBRUTINIB
     Indication: CHRONIC LYMPHOCYTIC LEUKAEMIA
     Dosage: 280 MG, QD
     Route: 048
     Dates: start: 20180505, end: 20181115
  4. PANTOPRAZOLE SODIUM. [Concomitant]
     Active Substance: PANTOPRAZOLE SODIUM
     Indication: PRODUCT USED FOR UNKNOWN INDICATION
  5. IMBRUVICA [Suspect]
     Active Substance: IBRUTINIB
     Dosage: 280 MG, QD
     Route: 048
     Dates: start: 20181012, end: 201907
  6. ROSUVASTATIN CALCIUM. [Concomitant]
     Active Substance: ROSUVASTATIN CALCIUM
     Indication: PRODUCT USED FOR UNKNOWN INDICATION
  7. TYLENOL PM EXTRA STRENGTH [Concomitant]
     Active Substance: ACETAMINOPHEN\DIPHENHYDRAMINE HYDROCHLORIDE
     Indication: PRODUCT USED FOR UNKNOWN INDICATION
  8. IMBRUVICA [Suspect]
     Active Substance: IBRUTINIB
     Indication: CHRONIC LYMPHOCYTIC LEUKAEMIA
     Dosage: 280 MG, QD
     Route: 048
     Dates: start: 20151103, end: 20180404
  9. IMBRUVICA [Suspect]
     Active Substance: IBRUTINIB
     Route: 048
     Dates: start: 20151017, end: 20180504
  10. LORAZEPAM. [Concomitant]
     Active Substance: LORAZEPAM
     Indication: PRODUCT USED FOR UNKNOWN INDICATION
  11. FLOMAX [Concomitant]
     Active Substance: TAMSULOSIN HYDROCHLORIDE
     Indication: PRODUCT USED FOR UNKNOWN INDICATION
  12. ASPIRIN                            /00002701/ [Concomitant]
     Active Substance: ASPIRIN
     Indication: PRODUCT USED FOR UNKNOWN INDICATION
  13. RAPAFLO [Concomitant]
     Active Substance: SILODOSIN
     Indication: PRODUCT USED FOR UNKNOWN INDICATION
  14. IMBRUVICA [Suspect]
     Active Substance: IBRUTINIB
     Route: 048
     Dates: start: 20180505, end: 20181215
  15. IMBRUVICA [Suspect]
     Active Substance: IBRUTINIB
     Dosage: 280 MG, QD
     Route: 048
     Dates: start: 20180323, end: 20181011
  16. CITALOPRAM HYDROBROMIDE. [Concomitant]
     Active Substance: CITALOPRAM HYDROBROMIDE
     Indication: PRODUCT USED FOR UNKNOWN INDICATION

REACTIONS (11)
  - Aspiration [Unknown]
  - Gastrooesophageal reflux disease [Recovered/Resolved]
  - Hypotension [Unknown]
  - Joint swelling [Unknown]
  - Benign prostatic hyperplasia [Unknown]
  - Procedural complication [Unknown]
  - White blood cell count increased [Unknown]
  - Endoscopy [Unknown]
  - Oral mucosal blistering [Unknown]
  - Arthralgia [Unknown]
  - Neuropathy peripheral [Unknown]

NARRATIVE: CASE EVENT DATE: 2015
